FAERS Safety Report 13653096 (Version 1)
Quarter: 2017Q2

REPORT INFORMATION
  Report Type: Spontaneous
  Country: US (occurrence: US)
  Receive Date: 20170614
  Receipt Date: 20170614
  Transmission Date: 20170830
  Serious: Yes (Hospitalization)
  Sender: FDA-Public Use
  Company Number: US-ROCHE-1556772

PATIENT
  Age: 76 Year
  Sex: Male

DRUGS (1)
  1. XELODA [Suspect]
     Active Substance: CAPECITABINE
     Indication: PRODUCT USED FOR UNKNOWN INDICATION
     Dosage: FOR 14 DAYS
     Route: 048
     Dates: start: 20150211, end: 20150304

REACTIONS (5)
  - Dehydration [Unknown]
  - Headache [Unknown]
  - Vomiting [Unknown]
  - Decreased appetite [Unknown]
  - Oropharyngeal pain [Unknown]
